FAERS Safety Report 22234489 (Version 1)
Quarter: 2023Q2

REPORT INFORMATION
  Report Type: Spontaneous
  Country: US (occurrence: None)
  Receive Date: 20230420
  Receipt Date: 20230420
  Transmission Date: 20230722
  Serious: No
  Sender: FDA-Public Use
  Company Number: US-ROCHE-3188814

PATIENT
  Age: 77 Year
  Sex: Female
  Weight: 63.560 kg

DRUGS (2)
  1. ESBRIET [Suspect]
     Active Substance: PIRFENIDONE
     Indication: Idiopathic pulmonary fibrosis
     Dosage: 3 PILLS 3 TIMES A DAY
     Route: 048
     Dates: start: 20220718
  2. ESBRIET [Suspect]
     Active Substance: PIRFENIDONE
     Indication: Bronchiectasis

REACTIONS (7)
  - Skin reaction [Unknown]
  - Pruritus [Unknown]
  - Rash [Unknown]
  - Skin induration [Unknown]
  - Rash macular [Unknown]
  - Peripheral swelling [Not Recovered/Not Resolved]
  - Off label use [Unknown]

NARRATIVE: CASE EVENT DATE: 20220922
